FAERS Safety Report 5525864-X (Version None)
Quarter: 2008Q1

REPORT INFORMATION
  Report Type: 
  Country: None (occurrence: None)
  Receive Date: 20071126
  Receipt Date: 20071119
  Transmission Date: 20080703
  Serious: Yes (Death)
  Sender: FDA-Public Use
  Company Number: FR-AVENTIS-200713655FR

PATIENT
  Age: 48 Year
  Sex: Male

DRUGS (14)
  1. LASIX [Suspect]
     Dates: end: 20071010
  2. CLAFORAN [Suspect]
     Dates: end: 20071008
  3. ARIXTRA [Suspect]
     Indication: DEEP VEIN THROMBOSIS
     Route: 058
     Dates: end: 20071006
  4. ARIXTRA [Suspect]
     Indication: PULMONARY EMBOLISM
     Route: 058
     Dates: end: 20071006
  5. HEPARIN [Suspect]
     Route: 042
     Dates: start: 20071006, end: 20071008
  6. ORGARAN                            /01353901/ [Suspect]
     Route: 058
     Dates: start: 20071008, end: 20071010
  7. MIDAZOLAM HCL [Suspect]
     Dates: end: 20071010
  8. ULTIVA [Suspect]
     Dates: end: 20071010
  9. OMEPRAZOLE [Suspect]
     Dates: end: 20071009
  10. NICARDIPINE HCL [Suspect]
     Dates: end: 20071009
  11. FLUMAZENIL [Suspect]
     Dates: start: 20071010, end: 20071010
  12. AMIKLIN                            /00391001/ [Concomitant]
     Dates: start: 20070101
  13. TAZOCILLINE [Concomitant]
     Dates: start: 20070101
  14. CIFLOX                             /00697201/ [Concomitant]
     Dates: start: 20070101

REACTIONS (2)
  - CEREBRAL HAEMORRHAGE [None]
  - COMA [None]
